FAERS Safety Report 5781400 (Version 4)
Quarter: 2012Q4

REPORT INFORMATION
  Report Type: 
  Country: GB (occurrence: GB)
  Receive Date: 20050425
  Receipt Date: 20121210
  Transmission Date: 20130627
  Serious: Yes (Other)
  Sender: FDA-Public Use
  Company Number: GB-JNJFOC-20050300987

PATIENT
  Age: 60 Year
  Sex: Female
  Weight: 75.9 kg

DRUGS (6)
  1. IBUPROFEN [Suspect]
     Indication: PAIN
     Route: 048
     Dates: start: 20050124, end: 20050201
  2. IBUPROFEN [Suspect]
     Indication: ARTHRITIS
     Route: 048
     Dates: start: 20050124, end: 20050201
  3. CO-PROXAMOL [Concomitant]
     Dosage: 1-2 3x daily
     Route: 048
  4. COLOFAC [Concomitant]
     Route: 048
  5. CUPROFEN [Concomitant]
     Route: 048
  6. APOREX [Concomitant]
     Indication: ARTHRALGIA
     Route: 048

REACTIONS (4)
  - Dizziness [Recovered/Resolved]
  - Dysgeusia [Recovered/Resolved]
  - Pyrexia [Recovered/Resolved]
  - Nausea [Recovered/Resolved]
